FAERS Safety Report 23474110 (Version 1)
Quarter: 2024Q1

REPORT INFORMATION
  Report Type: Report from Study
  Country: US (occurrence: US)
  Receive Date: 20240204
  Receipt Date: 20240204
  Transmission Date: 20240410
  Serious: Yes (Other)
  Sender: FDA-Public Use
  Company Number: US-JNJFOC-20240165122

PATIENT
  Age: 67 Year
  Sex: Female

DRUGS (1)
  1. SPRAVATO [Suspect]
     Active Substance: ESKETAMINE
     Indication: Depression
     Dosage: ^56 MG, 1 TOTAL DOSE^, PATIENT HAD SUBSEQUENT DOSES OF 56 MG ON 25-JAN-2024 AND 30-JAN-2024.
     Dates: start: 20240123, end: 20240123

REACTIONS (7)
  - Mental impairment [Recovered/Resolved]
  - Sensory disturbance [Recovered/Resolved]
  - Panic disorder [Recovered/Resolved]
  - Sedation [Recovered/Resolved]
  - Dissociation [Recovered/Resolved]
  - Depressed mood [Recovered/Resolved]
  - Depression [Not Recovered/Not Resolved]

NARRATIVE: CASE EVENT DATE: 20240123
